FAERS Safety Report 18559627 (Version 2)
Quarter: 2022Q1

REPORT INFORMATION
  Report Type: Report from Study
  Country: US (occurrence: US)
  Receive Date: 20201130
  Receipt Date: 20220119
  Transmission Date: 20220424
  Serious: No
  Sender: FDA-Public Use
  Company Number: US-TAKEDA-2020TUS049626

PATIENT
  Age: 41 Year
  Sex: Female

DRUGS (2)
  1. LANADELUMAB [Suspect]
     Active Substance: LANADELUMAB
     Indication: Product used for unknown indication
     Dosage: 300 MILLIGRAM
     Route: 058
     Dates: start: 2020
  2. LANADELUMAB [Suspect]
     Active Substance: LANADELUMAB
     Dosage: 300 MILLIGRAM
     Route: 058
     Dates: start: 202106

REACTIONS (2)
  - Injection site pain [Unknown]
  - Respiratory tract infection [Unknown]

NARRATIVE: CASE EVENT DATE: 20201102
